FAERS Safety Report 11992896 (Version 1)
Quarter: 2016Q1

REPORT INFORMATION
  Report Type: Spontaneous
  Country: US (occurrence: None)
  Receive Date: 20160202
  Receipt Date: 20160202
  Transmission Date: 20160526
  Serious: Yes (Hospitalization)
  Sender: FDA-Public Use
  Company Number: None

PATIENT
  Age: 66 Year
  Sex: Male
  Weight: 120.9 kg

DRUGS (1)
  1. WARFARIN [Suspect]
     Active Substance: WARFARIN
     Indication: ATRIAL FIBRILLATION
     Dosage: MG PO
     Route: 048
     Dates: start: 20130208

REACTIONS (4)
  - Haemorrhoidal haemorrhage [None]
  - Gastric haemorrhage [None]
  - Haemorrhoids [None]
  - Diverticulum [None]

NARRATIVE: CASE EVENT DATE: 20160106
